FAERS Safety Report 6685906-5 (Version None)
Quarter: 2010Q2

REPORT INFORMATION
  Report Type: 
  Country: None (occurrence: None)
  Receive Date: 20100419
  Receipt Date: 20100414
  Transmission Date: 20101027
  Serious: Yes (Death, Hospitalization)
  Sender: FDA-Public Use
  Company Number: US-ASTRAZENECA-2009SE29463

PATIENT
  Age: 88 Year
  Sex: Female

DRUGS (10)
  1. NEXIUM [Suspect]
     Indication: GASTROOESOPHAGEAL REFLUX DISEASE
     Route: 048
  2. PREDNISONE [Concomitant]
  3. ANTIVERT [Concomitant]
  4. LASIX [Concomitant]
  5. REGLAN [Concomitant]
  6. REPLIVA 21/7 [Concomitant]
  7. CARDIZEM CD [Concomitant]
  8. CALCIUM SUPPLEMENT [Concomitant]
  9. DIOVAN [Concomitant]
  10. MIACALCIN [Concomitant]
     Route: 045

REACTIONS (11)
  - ANAEMIA [None]
  - ATELECTASIS [None]
  - CARDIAC DISORDER [None]
  - CARDIAC FAILURE CONGESTIVE [None]
  - DYSPNOEA [None]
  - ESSENTIAL THROMBOCYTHAEMIA [None]
  - LUNG DISORDER [None]
  - MELAENA [None]
  - PLEURAL EFFUSION [None]
  - PNEUMONIA [None]
  - WHEEZING [None]
